FAERS Safety Report 17757008 (Version 1)
Quarter: 2020Q2

REPORT INFORMATION
  Report Type: Spontaneous
  Country: US (occurrence: US)
  Receive Date: 20200507
  Receipt Date: 20200507
  Transmission Date: 20200714
  Serious: Yes (Other)
  Sender: FDA-Public Use
  Company Number: None

PATIENT
  Age: 53 Year
  Sex: Female
  Weight: 50.4 kg

DRUGS (2)
  1. QUINAPRIL/HCTZ 20-12.5MG TABLETS [Suspect]
     Active Substance: HYDROCHLOROTHIAZIDE\QUINAPRIL HYDROCHLORIDE
  2. CLONIDINE 0.1 MG TABLETS [Suspect]
     Active Substance: CLONIDINE
     Indication: HYPERTENSION
     Dosage: ?          QUANTITY:1 TABLET(S);?
     Route: 048
     Dates: start: 20200420, end: 20200430

REACTIONS (1)
  - Insomnia [None]

NARRATIVE: CASE EVENT DATE: 20200501
